FAERS Safety Report 4610592-5 (Version None)
Quarter: 2005Q1

REPORT INFORMATION
  Report Type: 
  Country: None (occurrence: None)
  Receive Date: 20050316
  Receipt Date: 20050310
  Transmission Date: 20050727
  Serious: Yes (Hospitalization, Other)
  Sender: FDA-Public Use
  Company Number: 05-03-0382

PATIENT
  Age: 46 Year
  Sex: Male

DRUGS (2)
  1. CLOZAPINE [Suspect]
     Indication: ANXIETY
     Dosage: 50-200 MG QD ORAL
     Route: 048
     Dates: start: 20041101, end: 20040216
  2. CLOZAPINE [Suspect]
     Indication: SCHIZOPHRENIA
     Dosage: 50-200 MG QD ORAL
     Route: 048
     Dates: start: 20041101, end: 20040216

REACTIONS (2)
  - DROOLING [None]
  - PNEUMONIA ASPIRATION [None]
